FAERS Safety Report 20763981 (Version 1)
Quarter: 2022Q2

REPORT INFORMATION
  Report Type: Spontaneous
  Country: US (occurrence: US)
  Receive Date: 20220428
  Receipt Date: 20220428
  Transmission Date: 20220721
  Serious: No
  Sender: FDA-Public Use
  Company Number: US-PFIZER INC-202200124051

PATIENT
  Sex: Female

DRUGS (18)
  1. LEVOTHYROXINE SODIUM [Suspect]
     Active Substance: LEVOTHYROXINE SODIUM
     Dosage: UNK
  2. VITAMIN C [Concomitant]
     Active Substance: ASCORBIC ACID
     Dosage: UNK
  3. COUMARIN [Concomitant]
     Active Substance: COUMARIN
     Dosage: 1000 MG
  4. SINEMET [Concomitant]
     Active Substance: CARBIDOPA\LEVODOPA
     Dosage: UNK
  5. HOMEOPATHICS [Concomitant]
     Active Substance: HOMEOPATHICS
     Dosage: 760 MG
  6. APPLE CIDER [Concomitant]
     Dosage: 1 DF
  7. COLLAGEN [Concomitant]
     Active Substance: COLLAGEN
     Dosage: UNK
  8. CALCIUM [Concomitant]
     Active Substance: CALCIUM
     Dosage: UNK
  9. MAGNESIUM [Concomitant]
     Active Substance: MAGNESIUM
     Dosage: UNK
  10. ZINC [Concomitant]
     Active Substance: ZINC
     Dosage: UNK
  11. GELATIN [Concomitant]
     Active Substance: GELATIN
     Dosage: 1300 MG
  12. VITAMIN D NOS [Concomitant]
     Active Substance: VITAMIN D NOS
     Dosage: 1000 MG
  13. BIOTIN [Concomitant]
     Active Substance: BIOTIN
     Dosage: 10000 MG
  14. RETINOL [Concomitant]
     Active Substance: RETINOL
     Dosage: 2400 MG
  15. KERATIN [Concomitant]
     Active Substance: KERATIN
     Dosage: 7500
  16. COENZYME Q10 [Concomitant]
     Active Substance: DIETARY SUPPLEMENT\UBIDECARENONE
     Dosage: 100 MG
  17. VITAMIN E [Concomitant]
     Active Substance: .ALPHA.-TOCOPHEROL
     Dosage: 2000 MG (184MG X5 TABLET)
  18. ECHINACEA [Concomitant]
     Active Substance: ECHINACEA, UNSPECIFIED
     Indication: Pharyngeal disorder
     Dosage: UNK

REACTIONS (2)
  - Diarrhoea [Recovered/Resolved]
  - COVID-19 [Not Recovered/Not Resolved]
